FAERS Safety Report 14598824 (Version 1)
Quarter: 2018Q1

REPORT INFORMATION
  Report Type: Spontaneous
  Country: GB (occurrence: GB)
  Receive Date: 20180305
  Receipt Date: 20180305
  Transmission Date: 20180509
  Serious: Yes (Death, Hospitalization, Other)
  Sender: FDA-Public Use
  Company Number: GB-MYLANLABS-2018M1013855

PATIENT
  Age: 6 Year
  Sex: Female

DRUGS (8)
  1. PREDNISOLONE. [Suspect]
     Active Substance: PREDNISOLONE
     Indication: STILL^S DISEASE
     Dosage: 0.5-1 MG/KG/DAY WITH ADJUSTING AND AIMING FOR ALTERNATE DAY REGIMEN WHENEVER POSSIBLE DEPENDING O...
     Route: 048
  2. METHOTREXATE. [Suspect]
     Active Substance: METHOTREXATE
     Indication: STILL^S DISEASE
     Dosage: 15 MG/M2/WEEK
     Route: 058
  3. CICLOSPORIN [Suspect]
     Active Substance: CYCLOSPORINE
     Indication: STILL^S DISEASE
     Dosage: UNK
     Route: 065
     Dates: start: 200203, end: 200212
  4. IMMUNOGLOBULIN IV [Suspect]
     Active Substance: HUMAN IMMUNOGLOBULIN G
     Indication: STILL^S DISEASE
     Dosage: 2G/KG/MONTH
     Route: 042
     Dates: start: 200312, end: 200401
  5. INFLIXIMAB [Suspect]
     Active Substance: INFLIXIMAB
     Indication: STILL^S DISEASE
     Dosage: 6 MG/KG/MONTH
     Route: 065
     Dates: start: 200212, end: 200312
  6. METHYLPREDNISOLONE. [Suspect]
     Active Substance: METHYLPREDNISOLONE
     Indication: STILL^S DISEASE
     Dosage: WEEKLY IV METHYLPREDNISOLONE PULSES 30MG/KG/DAY; MAXIMUM 1G GIVEN AS A THREE DAY COURSE OR A SING...
     Route: 050
  7. METHYLPREDNISOLONE. [Suspect]
     Active Substance: METHYLPREDNISOLONE
     Dosage: GIVEN AS A 3-DAY COURSE FOR IV PULSE PRESUMED MACROPHAGE ACTIVATION SYNDROME
     Route: 050
  8. METHYLPREDNISOLONE. [Suspect]
     Active Substance: METHYLPREDNISOLONE
     Dosage: ANOTHER 3-DAY COURSE OF IV PULSE
     Route: 050

REACTIONS (6)
  - Growth retardation [Not Recovered/Not Resolved]
  - Staphylococcal infection [Fatal]
  - Osteoporosis [Not Recovered/Not Resolved]
  - Device related sepsis [Fatal]
  - Multiple organ dysfunction syndrome [Fatal]
  - Cushingoid [Not Recovered/Not Resolved]

NARRATIVE: CASE EVENT DATE: 20040610
